FAERS Safety Report 7560134-X (Version None)
Quarter: 2011Q2

REPORT INFORMATION
  Report Type: 
  Country: None (occurrence: None)
  Receive Date: 20110621
  Receipt Date: 20110620
  Transmission Date: 20111010
  Serious: Yes (Other)
  Sender: FDA-Public Use
  Company Number: A0899205A

PATIENT
  Age: 49 Year
  Sex: Female

DRUGS (2)
  1. ASPIRIN [Concomitant]
  2. AVANDIA [Suspect]
     Indication: DIABETES MELLITUS
     Route: 048

REACTIONS (7)
  - MYOCARDIAL INFARCTION [None]
  - CHEST PAIN [None]
  - CARDIOMYOPATHY [None]
  - ARRHYTHMIA [None]
  - THROMBOSIS [None]
  - DIZZINESS [None]
  - CEREBROVASCULAR ACCIDENT [None]
